FAERS Safety Report 8443112 (Version 4)
Quarter: 2012Q4

REPORT INFORMATION
  Report Type: Report from Study
  Country: DE (occurrence: DE)
  Receive Date: 20120306
  Receipt Date: 20121029
  Transmission Date: 20130627
  Serious: Yes (Death, Hospitalization, Other)
  Sender: FDA-Public Use
  Company Number: DE-ELI_LILLY_AND_COMPANY-10-11-00142

PATIENT
  Age: 61 Year
  Sex: Male
  Weight: 64.1 kg

DRUGS (10)
  1. NECITUMUMAB [Suspect]
     Indication: NON-SMALL CELL LUNG CANCER
     Dosage: 800 mg, UNK
     Route: 042
     Dates: start: 20100520
  2. PEMETREXED [Suspect]
     Indication: NON-SMALL CELL LUNG CANCER
     Dosage: 900 mg, UNK
     Route: 042
     Dates: start: 20100521
  3. CISPLATIN [Suspect]
     Indication: NON-SMALL CELL LUNG CANCER
     Dosage: 130 mg, UNK
     Route: 042
     Dates: start: 20100521
  4. VOLTAREN                                /SCH/ [Concomitant]
     Indication: PAIN
  5. DECORTIN [Concomitant]
     Indication: PROPHYLAXIS
     Dates: start: 20100424
  6. ACC                                /00082801/ [Concomitant]
     Indication: COUGH
  7. NEXIUM [Concomitant]
     Indication: PROPHYLAXIS
     Dates: start: 20100421
  8. FOLSAN [Concomitant]
     Indication: PRODUCT USED FOR UNKNOWN INDICATION
     Dates: start: 20100520
  9. UNACID [Concomitant]
     Indication: RESPIRATORY TRACT INFECTION
     Dates: start: 20100510, end: 20100515
  10. CYTOBION [Concomitant]
     Indication: PRODUCT USED FOR UNKNOWN INDICATION
     Dates: start: 20100414, end: 20100514

REACTIONS (5)
  - Intra-abdominal haemorrhage [Fatal]
  - Splenic infarction [Fatal]
  - Intestinal gangrene [Fatal]
  - Sepsis [Fatal]
  - Intestinal infarction [Fatal]
